FAERS Safety Report 9436718 (Version 2)
Quarter: 2014Q1

REPORT INFORMATION
  Report Type: Spontaneous
  Country: US (occurrence: US)
  Receive Date: 20130802
  Receipt Date: 20140124
  Transmission Date: 20141002
  Serious: Yes (Disabling, Other)
  Sender: FDA-Public Use
  Company Number: US-JNJFOC-20130713199

PATIENT
  Sex: Male

DRUGS (3)
  1. REMICADE [Suspect]
     Indication: PSORIATIC ARTHROPATHY
     Route: 042
  2. METHOTREXATE [Suspect]
     Indication: PSORIATIC ARTHROPATHY
     Route: 065
  3. TYLENOL 3 [Concomitant]
     Indication: PAIN
     Route: 065

REACTIONS (10)
  - Tooth loss [Unknown]
  - Left ventricular failure [Not Recovered/Not Resolved]
  - Bone disorder [Unknown]
  - Urticaria [Not Recovered/Not Resolved]
  - Tooth discolouration [Unknown]
  - Tooth disorder [Unknown]
  - Pain [Unknown]
  - Gingival recession [Unknown]
  - Vitamin C deficiency [Unknown]
  - Infusion related reaction [Not Recovered/Not Resolved]
